FAERS Safety Report 4533472-2 (Version None)
Quarter: 2004Q4

REPORT INFORMATION
  Report Type: 
  Country: None (occurrence: None)
  Receive Date: 20041207
  Receipt Date: 20040924
  Transmission Date: 20050328
  Serious: Yes (Other)
  Sender: FDA-Public Use
  Company Number: 800142

PATIENT
  Age: 53 Year
  Sex: Male
  Weight: 154.223 kg

DRUGS (19)
  1. DIANEAL [Suspect]
     Indication: PERITONEAL DIALYSIS
     Dosage: 18 L; QD; INTRAPERITONEAL
     Route: 033
     Dates: start: 19990101
  2. NEPHPLEX [Concomitant]
  3. COREG [Concomitant]
  4. ASPIRIN [Concomitant]
  5. VASOTEC [Concomitant]
  6. LIPITOR [Concomitant]
  7. LOPID [Concomitant]
  8. E.E.S. [Concomitant]
  9. CORDARONE [Concomitant]
  10. NEXIUM [Concomitant]
  11. TYLENOL PM [Concomitant]
  12. CEPHULAC [Concomitant]
  13. SYNTHROID [Concomitant]
  14. ALLEGRA [Concomitant]
  15. PAXIL [Concomitant]
  16. NPH INSULIN [Concomitant]
  17. REGULAR INSULIN [Concomitant]
  18. INSULIN LISPRO [Concomitant]
  19. CALCIUM CARBONATE [Concomitant]

REACTIONS (2)
  - PERITONITIS BACTERIAL [None]
  - STAPHYLOCOCCAL INFECTION [None]
